FAERS Safety Report 17912029 (Version 1)
Quarter: 2020Q2

REPORT INFORMATION
  Report Type: Spontaneous
  Country: US (occurrence: US)
  Receive Date: 20200617
  Receipt Date: 20200617
  Transmission Date: 20200714
  Serious: Yes (Disabling)
  Sender: FDA-Public Use
  Company Number: None

PATIENT
  Age: 67 Year
  Sex: Female
  Weight: 67.05 kg

DRUGS (3)
  1. IBANDRONATE SODIUM TABLETS 150MG [Suspect]
     Active Substance: IBANDRONATE SODIUM
     Indication: OSTEOPOROSIS
     Dosage: ?          QUANTITY:1 TABLET(S);OTHER FREQUENCY:ONCE A MONTH;?
     Route: 048
     Dates: start: 20200611, end: 20200611
  2. CITRACAL PLUS D3 [Concomitant]
  3. LISINOPRIL HCTZ 20/25 [Concomitant]

REACTIONS (6)
  - Myalgia [None]
  - Pyrexia [None]
  - Arthralgia [None]
  - Headache [None]
  - Vomiting [None]
  - Abdominal pain [None]

NARRATIVE: CASE EVENT DATE: 20200611
